FAERS Safety Report 7720689-9 (Version None)
Quarter: 2011Q3

REPORT INFORMATION
  Report Type: 
  Country: None (occurrence: None)
  Receive Date: 20110831
  Receipt Date: 20110824
  Transmission Date: 20111222
  Serious: Yes (Hospitalization, Disabling, Other)
  Sender: FDA-Public Use
  Company Number: PHEH2009US16948

PATIENT
  Sex: Male

DRUGS (17)
  1. CELEXA [Concomitant]
     Dosage: 20 MG, BID
  2. PHENERGAN HCL [Concomitant]
     Dosage: 25 MG, PRN
  3. SALSALATE [Concomitant]
  4. ZOMETA [Suspect]
     Indication: MULTIPLE MYELOMA
  5. LASIX [Concomitant]
  6. MULTI-VITAMIN [Concomitant]
  7. CYPROHEPTADINE HCL [Concomitant]
  8. ATIVAN [Concomitant]
  9. COREG [Concomitant]
  10. PROMETHAZINE [Concomitant]
  11. OXYCODONE HCL [Concomitant]
  12. ATIVAN [Concomitant]
     Dosage: 1 MG, BID
  13. COUMADIN [Concomitant]
  14. SULFADIAZINE [Concomitant]
  15. ASPIRIN [Concomitant]
  16. PERCOCET [Concomitant]
  17. PLAQUENIL [Concomitant]
     Dosage: 200 MG, QD

REACTIONS (63)
  - ASTHENIA [None]
  - HYPERTENSION [None]
  - MYALGIA [None]
  - DEEP VEIN THROMBOSIS [None]
  - DIPLOPIA [None]
  - PLEURAL EFFUSION [None]
  - ANXIETY [None]
  - OSTEOMYELITIS [None]
  - NEOPLASM MALIGNANT [None]
  - LEFT VENTRICULAR DYSFUNCTION [None]
  - VENTRICULAR HYPOKINESIA [None]
  - SPINAL OSTEOARTHRITIS [None]
  - ORAL PAIN [None]
  - DIARRHOEA [None]
  - HEADACHE [None]
  - PULMONARY GRANULOMA [None]
  - PAIN [None]
  - SLEEP APNOEA SYNDROME [None]
  - SKIN CANCER [None]
  - HYPOKALAEMIA [None]
  - CARPAL TUNNEL SYNDROME [None]
  - NEUROPATHY PERIPHERAL [None]
  - OEDEMA PERIPHERAL [None]
  - DEAFNESS [None]
  - BREATH ODOUR [None]
  - DEPRESSION [None]
  - DYSPNOEA EXERTIONAL [None]
  - MUSCULOSKELETAL PAIN [None]
  - BONE PAIN [None]
  - CONSTIPATION [None]
  - THROMBOCYTOPENIA [None]
  - SKIN LESION [None]
  - OSTEONECROSIS OF JAW [None]
  - CELLULITIS [None]
  - GASTROOESOPHAGEAL REFLUX DISEASE [None]
  - CARDIOMYOPATHY [None]
  - TENOSYNOVITIS [None]
  - HYPOAESTHESIA [None]
  - ARTHRALGIA [None]
  - ARRHYTHMIA [None]
  - DIVERTICULITIS [None]
  - HYPOTENSION [None]
  - NEUTROPENIA [None]
  - CONFUSIONAL STATE [None]
  - INJURY [None]
  - ANHEDONIA [None]
  - MULTIPLE MYELOMA [None]
  - FATIGUE [None]
  - TINNITUS [None]
  - ARTHRITIS [None]
  - OEDEMA [None]
  - INFECTION [None]
  - ANAEMIA [None]
  - HYPERCHOLESTEROLAEMIA [None]
  - PLASMACYTOSIS [None]
  - OVERWEIGHT [None]
  - LEUKOPENIA [None]
  - OSTEOPENIA [None]
  - PNEUMONIA [None]
  - SQUAMOUS CELL CARCINOMA [None]
  - INTERVERTEBRAL DISC DEGENERATION [None]
  - SEBORRHOEIC DERMATITIS [None]
  - DECREASED APPETITE [None]
